FAERS Safety Report 8935830 (Version 2)
Quarter: 2013Q1

REPORT INFORMATION
  Report Type: Report from Study
  Country: AU (occurrence: AU)
  Receive Date: 20121130
  Receipt Date: 20130213
  Transmission Date: 20140127
  Serious: Yes (Hospitalization)
  Sender: FDA-Public Use
  Company Number: AU-BRISTOL-MYERS SQUIBB COMPANY-17142514

PATIENT
  Age: 69 Year
  Sex: Male
  Weight: 80.8 kg

DRUGS (9)
  1. LOMUSTINE [Suspect]
     Indication: GLIOBLASTOMA
     Route: 048
     Dates: start: 20121101
  2. CISPLATIN [Suspect]
  3. DEXAMETHASONE [Concomitant]
     Dates: start: 201209
  4. LAMICTAL [Concomitant]
     Dates: start: 20121022
  5. KEPPRA [Concomitant]
     Dates: start: 20120523
  6. RAMIPRIL [Concomitant]
     Dates: start: 20120223
  7. NILSTAT [Concomitant]
     Dates: start: 20121011
  8. KEFLEX [Concomitant]
     Dates: start: 20121026, end: 20121031
  9. NAVOBAN [Concomitant]
     Dates: start: 20121115

REACTIONS (1)
  - Hemiparesis [Not Recovered/Not Resolved]
